FAERS Safety Report 7752596-X (Version None)
Quarter: 2011Q3

REPORT INFORMATION
  Report Type: 
  Country: None (occurrence: None)
  Receive Date: 20110913
  Receipt Date: 20110830
  Transmission Date: 20111222
  Serious: Yes (Hospitalization)
  Sender: FDA-Public Use
  Company Number: TCI2011A04207

PATIENT
  Age: 69 Year
  Sex: Female

DRUGS (2)
  1. FLUVASTATIN [Concomitant]
  2. ACTOS [Suspect]
     Indication: DIABETES MELLITUS
     Route: 048
     Dates: start: 19910101, end: 20110809

REACTIONS (2)
  - METASTASES TO LYMPH NODES [None]
  - METASTATIC CARCINOMA OF THE BLADDER [None]
